FAERS Safety Report 25727242 (Version 1)
Quarter: 2025Q3

REPORT INFORMATION
  Report Type: Spontaneous
  Country: CN (occurrence: CN)
  Receive Date: 20250826
  Receipt Date: 20250826
  Transmission Date: 20251021
  Serious: Yes (Hospitalization, Other)
  Sender: DAIICHI
  Company Number: CN-DSJP-DS-2025-159799-CN

PATIENT
  Age: 78 Year
  Sex: Male
  Weight: 60 kg

DRUGS (3)
  1. TRASTUZUMAB DERUXTECAN [Suspect]
     Active Substance: TRASTUZUMAB DERUXTECAN
     Indication: Lung neoplasm malignant
     Dosage: 300 MG, ONCE EVERY 3 WK
     Route: 041
     Dates: start: 20241205, end: 20241205
  2. TRASTUZUMAB DERUXTECAN [Suspect]
     Active Substance: TRASTUZUMAB DERUXTECAN
     Dosage: 300 MG, ONCE EVERY 3 WK
     Route: 041
     Dates: start: 20250613, end: 20250613
  3. DEXTROSE [Concomitant]
     Active Substance: DEXTROSE MONOHYDRATE
     Indication: Vehicle solution use
     Dosage: 100 ML, ONCE EVERY 3 WK
     Route: 041
     Dates: start: 20250613, end: 20250613

REACTIONS (2)
  - Pneumothorax [Not Recovered/Not Resolved]
  - Interstitial lung disease [Not Recovered/Not Resolved]

NARRATIVE: CASE EVENT DATE: 20250801
